FAERS Safety Report 12461238 (Version 1)
Quarter: 2016Q2

REPORT INFORMATION
  Report Type: Spontaneous
  Country: US (occurrence: US)
  Receive Date: 20160613
  Receipt Date: 20160613
  Transmission Date: 20160815
  Serious: Yes (Other)
  Sender: FDA-Public Use
  Company Number: US-US WORLDMEDS, LLC-USW201502-000029

PATIENT
  Age: 56 Year
  Sex: Male
  Weight: 68.03 kg

DRUGS (4)
  1. APOKYN [Suspect]
     Active Substance: APOMORPHINE HYDROCHLORIDE
     Route: 058
  2. APOKYN [Suspect]
     Active Substance: APOMORPHINE HYDROCHLORIDE
     Route: 058
     Dates: start: 20151222
  3. COMTAN [Concomitant]
     Active Substance: ENTACAPONE
  4. APOKYN [Suspect]
     Active Substance: APOMORPHINE HYDROCHLORIDE
     Indication: PARKINSON^S DISEASE
     Route: 058
     Dates: start: 20141227

REACTIONS (3)
  - Nausea [Recovered/Resolved]
  - Anxiety [Unknown]
  - Hallucination [Unknown]

NARRATIVE: CASE EVENT DATE: 201506
